FAERS Safety Report 11589113 (Version 3)
Quarter: 2015Q4

REPORT INFORMATION
  Report Type: Spontaneous
  Country: US (occurrence: US)
  Receive Date: 20151002
  Receipt Date: 20151113
  Transmission Date: 20160304
  Serious: No
  Sender: FDA-Public Use
  Company Number: US-PFIZER INC-2015315655

PATIENT
  Age: 48 Year
  Sex: Female
  Weight: 64 kg

DRUGS (3)
  1. ADVIL PM [Suspect]
     Active Substance: DIPHENHYDRAMINE CITRATE\IBUPROFEN
     Indication: NECK PAIN
     Dosage: 400 MG OR 600
     Route: 048
     Dates: start: 2015, end: 2015
  2. ADVIL PM [Suspect]
     Active Substance: DIPHENHYDRAMINE CITRATE\IBUPROFEN
     Indication: HEADACHE
  3. CHLORDIAZEPOXIDE CLIDINIUM [Concomitant]
     Active Substance: CHLORDIAZEPOXIDE HYDROCHLORIDE\CLIDINIUM BROMIDE
     Indication: DYSPEPSIA
     Dosage: ONCE BEFORE MEALS
     Route: 048

REACTIONS (4)
  - Poor quality drug administered [Unknown]
  - Abdominal discomfort [Recovering/Resolving]
  - Product physical issue [Unknown]
  - Intentional product use issue [Unknown]

NARRATIVE: CASE EVENT DATE: 2015
